FAERS Safety Report 5670219-0 (Version None)
Quarter: 2008Q1

REPORT INFORMATION
  Report Type: 
  Country: None (occurrence: None)
  Receive Date: 20080314
  Receipt Date: 20080314
  Transmission Date: 20080703
  Serious: Yes (Hospitalization)
  Sender: FDA-Public Use
  Company Number: None

PATIENT
  Age: 71 Year
  Sex: Male
  Weight: 72.1219 kg

DRUGS (14)
  1. TAXOL [Suspect]
     Indication: LUNG NEOPLASM MALIGNANT
     Dosage: 380MG IV
     Route: 042
     Dates: start: 20080227
  2. CARBOPLATIN [Suspect]
     Dosage: 564 MG IV
     Route: 042
     Dates: start: 20080227
  3. THEOPHYLLINE [Concomitant]
  4. ADVAIR DISKUS 100/50 [Concomitant]
  5. COMBIVENT [Concomitant]
  6. PRILOSEC [Concomitant]
  7. HYDROXYZINE [Concomitant]
  8. SAW PALMETTO [Concomitant]
  9. BENZONATATE [Concomitant]
  10. SIMVASTATIN [Concomitant]
  11. SPIRIVA [Concomitant]
  12. HYCODAN PRN [Concomitant]
  13. DIFLUCAN [Concomitant]
  14. TOPROL [Concomitant]

REACTIONS (4)
  - CHILLS [None]
  - DYSPNOEA [None]
  - NEUTROPENIA [None]
  - PYREXIA [None]
